FAERS Safety Report 24031100 (Version 1)
Quarter: 2024Q2

REPORT INFORMATION
  Report Type: Report from Study
  Country: US (occurrence: US)
  Receive Date: 20240628
  Receipt Date: 20240628
  Transmission Date: 20240716
  Serious: Yes (Other)
  Sender: FDA-Public Use
  Company Number: US-ITALFARMACO SPA-2158673

PATIENT
  Age: 69 Year
  Sex: Male

DRUGS (11)
  1. TIGLUTIK [Suspect]
     Active Substance: RILUZOLE
     Indication: Amyotrophic lateral sclerosis
     Dates: start: 20221214, end: 20240614
  2. ALBUTEROL [Concomitant]
     Active Substance: ALBUTEROL
  3. SODIUM CHLORIDE [Concomitant]
     Active Substance: SODIUM CHLORIDE
  4. PEPCID AC [Concomitant]
     Active Substance: FAMOTIDINE
  5. AMATINE [Concomitant]
  6. ROBINUL [Concomitant]
     Active Substance: GLYCOPYRROLATE
  7. LOVENOX [Concomitant]
     Active Substance: ENOXAPARIN SODIUM
  8. LANOXIN [Concomitant]
     Active Substance: DIGOXIN
  9. VALIUM [Concomitant]
     Active Substance: DIAZEPAM
  10. CELEXA [Concomitant]
     Active Substance: CITALOPRAM HYDROBROMIDE
  11. ABILIFY [Suspect]
     Active Substance: ARIPIPRAZOLE

REACTIONS (3)
  - Somnolence [Recovered/Resolved]
  - Oral discomfort [Recovered/Resolved]
  - Unresponsive to stimuli [Recovered/Resolved]
